FAERS Safety Report 8230204-1 (Version None)
Quarter: 2012Q1

REPORT INFORMATION
  Report Type: 
  Country: None (occurrence: None)
  Receive Date: 20120321
  Receipt Date: 20120321
  Transmission Date: 20120608
  Serious: No
  Sender: FDA-Public Use
  Company Number: None

PATIENT
  Sex: Female

DRUGS (1)
  1. ENBREL [Suspect]
     Indication: PSORIASIS
     Dosage: 50MG QW SQ
     Route: 058
     Dates: start: 20110909, end: 20111201

REACTIONS (6)
  - DRUG INEFFECTIVE [None]
  - SKIN DISORDER [None]
  - HEADACHE [None]
  - INSOMNIA [None]
  - ABDOMINAL PAIN UPPER [None]
  - AMNESIA [None]
